FAERS Safety Report 25129967 (Version 1)
Quarter: 2025Q1

REPORT INFORMATION
  Report Type: Spontaneous
  Country: EE (occurrence: None)
  Receive Date: 20250327
  Receipt Date: 20250327
  Transmission Date: 20250409
  Serious: Yes (Death, Hospitalization, Other)
  Sender: ORION
  Company Number: None

PATIENT
  Age: 77 Year
  Sex: Male

DRUGS (4)
  1. METHOTREXATE SODIUM [Suspect]
     Active Substance: METHOTREXATE SODIUM
     Indication: Vasculitis
     Dosage: 10 MG: STRENGTH
     Dates: start: 20250115, end: 20250302
  2. TULIP [Concomitant]
     Dosage: STRENGTH: 20 MG
  3. CIPROFLOXACIN [Concomitant]
     Active Substance: CIPROFLOXACIN
     Indication: Ulcer
     Dosage: STRENGTH: 500 MG
     Dates: start: 20250111, end: 20250115
  4. LINAGLIPTIN [Concomitant]
     Active Substance: LINAGLIPTIN
     Dosage: STRENGTH: 5 MG

REACTIONS (4)
  - General physical health deterioration [Fatal]
  - Pancytopenia [Fatal]
  - Acute kidney injury [Fatal]
  - Product use in unapproved indication [Unknown]

NARRATIVE: CASE EVENT DATE: 20250215
